FAERS Safety Report 11795472 (Version 2)
Quarter: 2015Q4

REPORT INFORMATION
  Report Type: Spontaneous
  Country: US (occurrence: US)
  Receive Date: 20151202
  Receipt Date: 20151209
  Transmission Date: 20160305
  Serious: Yes (Hospitalization, Other)
  Sender: FDA-Public Use
  Company Number: US-DSJP-DSU-2015-129548

PATIENT

DRUGS (5)
  1. BENICAR [Suspect]
     Active Substance: OLMESARTAN MEDOXOMIL
     Dosage: 40 UNK, UNK
     Dates: start: 20110917, end: 20120502
  2. BENICAR HCT [Suspect]
     Active Substance: HYDROCHLOROTHIAZIDE\OLMESARTAN MEDOXOMIL
     Indication: HYPERTENSION
     Dosage: 40MG/12.5MG
     Dates: start: 20120502, end: 20141202
  3. BENICAR [Suspect]
     Active Substance: OLMESARTAN MEDOXOMIL
     Indication: HYPERTENSION
     Dosage: 20 UNK, UNK
     Dates: start: 20110611
  4. BENICAR HCT [Suspect]
     Active Substance: HYDROCHLOROTHIAZIDE\OLMESARTAN MEDOXOMIL
     Dosage: 40MG/12.5MG
     Dates: start: 20150317
  5. ZESTRIL [Concomitant]
     Active Substance: LISINOPRIL
     Indication: PRODUCT USED FOR UNKNOWN INDICATION
     Dosage: 2.5 MG, UNK
     Dates: start: 20110310

REACTIONS (13)
  - Gastroenteritis [Unknown]
  - Neoplasm malignant [Unknown]
  - Large intestine polyp [Unknown]
  - Diverticulitis [Recovered/Resolved]
  - Constipation [Recovered/Resolved]
  - Diverticulum [Unknown]
  - Barrett^s oesophagus [Unknown]
  - Dizziness [Recovered/Resolved]
  - Mobile caecum syndrome [Recovered/Resolved]
  - Gastrooesophageal reflux disease [Unknown]
  - Gastritis [Unknown]
  - Malabsorption [Recovered/Resolved]
  - Abdominal hernia [Recovered/Resolved]

NARRATIVE: CASE EVENT DATE: 2011
